FAERS Safety Report 21139128 (Version 1)
Quarter: 2022Q3

REPORT INFORMATION
  Report Type: Spontaneous
  Country: US (occurrence: None)
  Receive Date: 20220727
  Receipt Date: 20220727
  Transmission Date: 20221026
  Serious: Yes (Other)
  Sender: FDA-Public Use
  Company Number: None

PATIENT
  Age: 66 Year
  Sex: Female
  Weight: 58.06 kg

DRUGS (7)
  1. MAGNESIUM CITRATE LEMON [Suspect]
     Active Substance: MAGNESIUM CITRATE
     Indication: Constipation
     Dosage: OTHER STRENGTH : 1.745 G PER FL OZ.;?OTHER QUANTITY : 10 OZ BOTTLE;?FREQUENCY : ONCE;?
     Route: 048
     Dates: start: 20220211, end: 20220218
  2. CRESTOR [Concomitant]
     Active Substance: ROSUVASTATIN CALCIUM
  3. MOTEGRITY [Concomitant]
     Active Substance: PRUCALOPRIDE SUCCINATE
  4. CULTURELLE [Concomitant]
     Active Substance: LACTOBACILLUS RHAMNOSUS
  5. ALBUTEROL [Concomitant]
     Active Substance: ALBUTEROL
  6. Multi vitamin gummies [Concomitant]
  7. VITAMIN E [Concomitant]
     Active Substance: .ALPHA.-TOCOPHEROL

REACTIONS (6)
  - Drug interaction [None]
  - Chills [None]
  - Hyperhidrosis [None]
  - Abdominal pain [None]
  - Abdominal pain [None]
  - Hepatic pain [None]

NARRATIVE: CASE EVENT DATE: 20220211
